FAERS Safety Report 23074107 (Version 1)
Quarter: 2023Q4

REPORT INFORMATION
  Report Type: Spontaneous
  Country: US (occurrence: None)
  Receive Date: 20231016
  Receipt Date: 20231016
  Transmission Date: 20240109
  Serious: Yes (Other)
  Sender: FDA-Public Use
  Company Number: None

PATIENT
  Age: 72 Year
  Sex: Male
  Weight: 99 kg

DRUGS (13)
  1. LEVOFLOXACIN [Suspect]
     Active Substance: LEVOFLOXACIN
     Indication: Ear infection
     Dates: start: 20230718, end: 20230725
  2. ALBUTEROL [Concomitant]
     Active Substance: ALBUTEROL
  3. Brovana nebulizer [Concomitant]
  4. LIPITOR [Concomitant]
     Active Substance: ATORVASTATIN CALCIUM
  5. botox injections for dystonia [Concomitant]
  6. PULMICORT TURBUHALER [Concomitant]
     Active Substance: BUDESONIDE
  7. NEXIUM [Concomitant]
     Active Substance: ESOMEPRAZOLE MAGNESIUM
  8. MUCINEX [Concomitant]
     Active Substance: GUAIFENESIN
  9. LOSARTAN [Concomitant]
     Active Substance: LOSARTAN
  10. SINGULAIR [Concomitant]
     Active Substance: MONTELUKAST SODIUM
  11. NUCALA [Concomitant]
     Active Substance: MEPOLIZUMAB
  12. VITAMIN D [Concomitant]
     Active Substance: VITAMIN D NOS
  13. COLACE [Concomitant]
     Active Substance: DOCUSATE SODIUM

REACTIONS (5)
  - Insomnia [None]
  - Decreased appetite [None]
  - Anxiety [None]
  - Panic reaction [None]
  - Claustrophobia [None]

NARRATIVE: CASE EVENT DATE: 20230718
